FAERS Safety Report 8513377-2 (Version None)
Quarter: 2012Q3

REPORT INFORMATION
  Report Type: 
  Country: None (occurrence: None)
  Receive Date: 20120717
  Receipt Date: 20120712
  Transmission Date: 20120928
  Serious: Yes (Other)
  Sender: FDA-Public Use
  Company Number: DE-AMGEN-DEUSP2012036832

PATIENT
  Age: 77 Year
  Sex: Male
  Weight: 93 kg

DRUGS (1)
  1. VECTIBIX [Suspect]
     Indication: PRODUCT USED FOR UNKNOWN INDICATION
     Dosage: UNK UNK, Q4WK

REACTIONS (1)
  - ACNE PUSTULAR [None]
